FAERS Safety Report 5596914-X (Version None)
Quarter: 2007Q4

REPORT INFORMATION
  Report Type: 
  Country: None (occurrence: None)
  Receive Date: 20071220
  Receipt Date: 20061016
  Transmission Date: 20080405
  Serious: Yes (Death)
  Sender: FDA-Public Use
  Company Number: 06H-163-0310833-00

PATIENT
  Age: 3 Year
  Sex: Male

DRUGS (9)
  1. DOBUTAMINE HCL [Suspect]
     Indication: BLOOD PRESSURE MANAGEMENT
     Dosage: CONTINUOUS
     Dates: start: 20060825, end: 20060825
  2. DOPAMINE HCL [Suspect]
     Indication: BLOOD PRESSURE MANAGEMENT
     Dosage: CONTINUOUS
     Dates: start: 20060825, end: 20060825
  3. LEVOPHED [Suspect]
     Indication: BLOOD PRESSURE MANAGEMENT
     Dosage: CONTINUOUS
     Dates: start: 20060825, end: 20060825
  4. VANCOMYCIN [Concomitant]
  5. ROCEPHIN [Concomitant]
  6. . [Concomitant]
  7. FENTANYL [Concomitant]
  8. VERSED [Concomitant]
  9. HYDRATION FLUID [Concomitant]

REACTIONS (1)
  - BLOOD PRESSURE FLUCTUATION [None]
